FAERS Safety Report 5117484-6 (Version None)
Quarter: 2006Q3

REPORT INFORMATION
  Report Type: 
  Country: None (occurrence: None)
  Receive Date: 20060929
  Receipt Date: 20060904
  Transmission Date: 20061208
  Serious: Yes (Death, Hospitalization)
  Sender: FDA-Public Use
  Company Number: HQWYE330105SEP06

PATIENT
  Sex: Female
  Weight: 57 kg

DRUGS (10)
  1. ENBREL [Suspect]
     Indication: RHEUMATOID ARTHRITIS
     Route: 058
     Dates: start: 20060703, end: 20060727
  2. METHOTREXATE [Suspect]
     Dosage: 2.5 MG, TAB
     Route: 048
     Dates: start: 20060513, end: 20060609
  3. METHOTREXATE [Suspect]
     Dosage: 2.5 MG, TAB
     Route: 048
     Dates: start: 20060610, end: 20060730
  4. PREDNISOLONE [Concomitant]
     Indication: RHEUMATOID ARTHRITIS
     Route: 048
     Dates: start: 20060511, end: 20060801
  5. MOBIC [Concomitant]
     Indication: RHEUMATOID ARTHRITIS
     Route: 048
     Dates: start: 20060511, end: 20060801
  6. PRANLUKAST [Concomitant]
     Indication: ASTHMA
     Route: 048
     Dates: start: 20060511, end: 20060801
  7. FLUTICASONE PROPIONATE [Concomitant]
     Indication: ASTHMA
     Route: 055
     Dates: start: 20060511, end: 20060801
  8. OMEPRAZOLE [Concomitant]
     Indication: GASTROOESOPHAGEAL REFLUX DISEASE
     Route: 048
     Dates: start: 20060511, end: 20060801
  9. LASIX [Concomitant]
     Indication: ANGINA PECTORIS
     Route: 048
     Dates: start: 20060511, end: 20060801
  10. VERAPAMIL HYDROCHLORIDE [Concomitant]
     Indication: ANGINA PECTORIS
     Route: 048
     Dates: start: 20060511, end: 20060801

REACTIONS (2)
  - PNEUMOCYSTIS JIROVECI PNEUMONIA [None]
  - STAPHYLOCOCCAL INFECTION [None]
